FAERS Safety Report 4636665-9 (Version None)
Quarter: 2005Q2

REPORT INFORMATION
  Report Type: 
  Country: None (occurrence: None)
  Receive Date: 20050328
  Receipt Date: 20041207
  Transmission Date: 20051028
  Serious: No
  Sender: FDA-Public Use
  Company Number: USA041285548

PATIENT
  Sex: Female

DRUGS (3)
  1. STRATTERA [Suspect]
     Dates: start: 20041202, end: 20041207
  2. PROZAC [Suspect]
  3. WELLBUTRIN SR [Concomitant]

REACTIONS (2)
  - ANXIETY [None]
  - SEXUAL DYSFUNCTION [None]
